FAERS Safety Report 21805332 (Version 2)
Quarter: 2023Q1

REPORT INFORMATION
  Report Type: Other
  Country: US (occurrence: None)
  Receive Date: 20230102
  Receipt Date: 20230103
  Transmission Date: 20230418
  Serious: Yes (Death)
  Sender: FDA-Public Use
  Company Number: US-ROCHE-3255066

PATIENT
  Age: 77 Year
  Sex: Female

DRUGS (56)
  1. ROZLYTREK [Suspect]
     Active Substance: ENTRECTINIB
     Indication: Lung neoplasm malignant
     Dosage: TAKE 2 CAPSULE(S) (600MG) BY MOUTH DAILY FOR 30 DAY(S)
     Route: 048
  2. VALIUM [Suspect]
     Active Substance: DIAZEPAM
     Indication: Product used for unknown indication
     Route: 048
  3. ISOSORBIDE MONONITRATE [Concomitant]
     Active Substance: ISOSORBIDE MONONITRATE
     Route: 048
  4. NITROGLYCERIN [Concomitant]
     Active Substance: NITROGLYCERIN
     Route: 060
  5. ATORVASTATIN [Concomitant]
     Active Substance: ATORVASTATIN
     Route: 048
  6. ATORVASTATIN [Concomitant]
     Active Substance: ATORVASTATIN
     Route: 048
     Dates: start: 20220514
  7. ATORVASTATIN [Concomitant]
     Active Substance: ATORVASTATIN
     Dosage: 3 PUFFS
     Route: 048
  8. CLOPIDOGREL [Concomitant]
     Active Substance: CLOPIDOGREL BISULFATE
     Route: 048
     Dates: start: 20220514
  9. FENTANYL [Concomitant]
     Active Substance: FENTANYL
     Dosage: 20-25 MCG
     Route: 042
     Dates: start: 20220531
  10. FLUMAZENIL [Concomitant]
     Active Substance: FLUMAZENIL
     Dates: start: 20220531
  11. MIDAZOLAM [Concomitant]
     Active Substance: MIDAZOLAM
     Dosage: 1-2 MG
     Route: 042
     Dates: start: 20220531, end: 20220531
  12. NALOXONE [Concomitant]
     Active Substance: NALOXONE
     Route: 042
     Dates: start: 20220531
  13. LIDOCAINE [Concomitant]
     Active Substance: LIDOCAINE
     Route: 058
     Dates: start: 20220728, end: 20220728
  14. LIDOCAINE [Concomitant]
     Active Substance: LIDOCAINE
     Dosage: 80MG=4 ML
     Route: 061
     Dates: start: 20220712
  15. DULOXETINE [Concomitant]
     Active Substance: DULOXETINE
     Route: 048
     Dates: start: 20220514
  16. PANTOPRAZOLE [Concomitant]
     Active Substance: PANTOPRAZOLE
     Route: 048
     Dates: start: 20220514
  17. RISPERIDONE [Concomitant]
     Active Substance: RISPERIDONE
     Route: 048
     Dates: start: 20220515
  18. TRAZODONE [Concomitant]
     Active Substance: TRAZODONE HYDROCHLORIDE
     Route: 048
     Dates: start: 20220514
  19. FLUOXETINE [Concomitant]
     Active Substance: FLUOXETINE HYDROCHLORIDE
     Route: 048
     Dates: start: 20220514
  20. PROMETHAZINE [Concomitant]
     Active Substance: PROMETHAZINE HYDROCHLORIDE
     Indication: Nausea
     Route: 048
     Dates: start: 20220514
  21. PROMETHAZINE [Concomitant]
     Active Substance: PROMETHAZINE HYDROCHLORIDE
     Indication: Vomiting
     Route: 042
     Dates: start: 20220712
  22. BENZONATATE [Concomitant]
     Active Substance: BENZONATATE
     Indication: Cough
     Route: 048
     Dates: start: 20220514
  23. ALBUTEROL [Concomitant]
     Active Substance: ALBUTEROL
     Dosage: EVERY 4 HOURS AS PER REQUIRED, 2 PUFFS
     Dates: start: 20220514
  24. ALBUTEROL [Concomitant]
     Active Substance: ALBUTEROL
     Dosage: EVERY 4 HOURS AS PER REQUIRED, 2 PUFFS
     Dates: start: 20220712
  25. CITALOPRAM [Concomitant]
     Active Substance: CITALOPRAM HYDROBROMIDE
     Route: 048
  26. METOPROLOL [Concomitant]
     Active Substance: METOPROLOL
     Route: 048
  27. ACETAMINOPHEN [Concomitant]
     Active Substance: ACETAMINOPHEN
     Indication: Pyrexia
     Route: 048
     Dates: start: 20220514
  28. ACETAMINOPHEN [Concomitant]
     Active Substance: ACETAMINOPHEN
     Indication: Pain
  29. FAMOTIDINE [Concomitant]
     Active Substance: FAMOTIDINE
     Indication: Dyspepsia
     Route: 048
     Dates: start: 20220514
  30. MELATONIN [Concomitant]
     Active Substance: MELATONIN
     Indication: Insomnia
     Route: 048
     Dates: start: 20220514
  31. ONDANSETRON [Concomitant]
     Active Substance: ONDANSETRON
     Indication: Nausea
     Route: 042
     Dates: start: 20220514, end: 20220712
  32. ONDANSETRON [Concomitant]
     Active Substance: ONDANSETRON
     Route: 042
     Dates: start: 20220712
  33. POLYETHYLENE GLYCOL 3350 [Concomitant]
     Active Substance: POLYETHYLENE GLYCOL 3350
     Indication: Constipation
     Route: 048
     Dates: start: 20220514
  34. FUROSEMIDE [Concomitant]
     Active Substance: FUROSEMIDE
     Route: 048
  35. CELECOXIB [Concomitant]
     Active Substance: CELECOXIB
     Route: 048
  36. SPIRONOLACTONE [Concomitant]
     Active Substance: SPIRONOLACTONE
     Route: 048
  37. POTASSIUM CHLORIDE [Concomitant]
     Active Substance: POTASSIUM CHLORIDE
     Route: 048
  38. ALENDRONATE [Concomitant]
     Active Substance: ALENDRONATE SODIUM
     Route: 048
  39. DIPRIVAN [Concomitant]
     Active Substance: PROPOFOL
     Route: 041
     Dates: start: 20220712, end: 20220712
  40. LACTATED RINGERS SOLUTION [Concomitant]
     Active Substance: CALCIUM CHLORIDE\POTASSIUM CHLORIDE\SODIUM CHLORIDE\SODIUM LACTATE
     Dosage: 30 ML/HR
     Route: 041
     Dates: start: 20220712
  41. CARBOPLATIN [Concomitant]
     Active Substance: CARBOPLATIN
     Route: 042
     Dates: start: 20220801, end: 20220801
  42. PACLITAXEL [Concomitant]
     Active Substance: PACLITAXEL
     Route: 042
     Dates: start: 20220801, end: 20220801
  43. DIPHENHYDRAMINE [Concomitant]
     Active Substance: DIPHENHYDRAMINE
     Route: 042
     Dates: start: 20220801, end: 20220801
  44. FAMOTIDINE [Concomitant]
     Active Substance: FAMOTIDINE
     Route: 042
     Dates: start: 20220801, end: 20220801
  45. DEXAMETHASONE [Concomitant]
     Active Substance: DEXAMETHASONE
     Route: 042
     Dates: start: 20220801, end: 20220801
  46. DEXAMETHASONE [Concomitant]
     Active Substance: DEXAMETHASONE
     Route: 041
     Dates: end: 20220712
  47. PALONOSETRON [Concomitant]
     Active Substance: PALONOSETRON
     Route: 042
     Dates: start: 20220801, end: 20220802
  48. PROCHLORPERAZINE [Concomitant]
     Active Substance: PROCHLORPERAZINE
     Indication: Nausea
     Route: 042
     Dates: start: 20220801, end: 20220802
  49. SODIUM CHLORIDE [Concomitant]
     Active Substance: SODIUM CHLORIDE
     Dosage: 0.9
     Route: 040
     Dates: start: 20220801, end: 20220801
  50. HYDROMORPHONE [Concomitant]
     Active Substance: HYDROMORPHONE
     Indication: Pain
     Dosage: 0.2-0.5 MG
     Route: 042
     Dates: start: 20220712
  51. LABETALOL [Concomitant]
     Active Substance: LABETALOL\LABETALOL HYDROCHLORIDE
     Indication: Hypertension
     Dosage: 5-10 MG
     Route: 042
     Dates: start: 20220712
  52. OXYCODONE AND ACETAMINOPHEN [Concomitant]
     Active Substance: ACETAMINOPHEN\OXYCODONE HYDROCHLORIDE
     Indication: Pain
     Route: 048
     Dates: start: 20220712
  53. PROPOFOL [Concomitant]
     Active Substance: PROPOFOL
     Route: 041
     Dates: end: 20220712
  54. LACTATED RINGERS SOLUTION [Concomitant]
     Active Substance: CALCIUM CHLORIDE\POTASSIUM CHLORIDE\SODIUM CHLORIDE\SODIUM LACTATE
     Route: 042
     Dates: start: 20220712
  55. GADOBUTROL [Concomitant]
     Active Substance: GADOBUTROL
     Route: 042
     Dates: start: 20220709, end: 20220709
  56. DIATRIZOATE MEGLUMINE [Concomitant]
     Active Substance: DIATRIZOATE MEGLUMINE
     Route: 048
     Dates: start: 20220627, end: 20220627

REACTIONS (1)
  - Death [Fatal]

NARRATIVE: CASE EVENT DATE: 20221222
